FAERS Safety Report 22604391 (Version 1)
Quarter: 2023Q2

REPORT INFORMATION
  Report Type: Spontaneous
  Country: US (occurrence: US)
  Receive Date: 20230615
  Receipt Date: 20230615
  Transmission Date: 20230721
  Serious: Yes (Other)
  Sender: FDA-Public Use
  Company Number: US-STRIDES ARCOLAB LIMITED-2023SP009062

PATIENT
  Age: 65 Year
  Sex: Male

DRUGS (4)
  1. PREDNISOLONE [Suspect]
     Active Substance: PREDNISOLONE
     Indication: Retinopathy
     Dosage: 5 MILLIGRAM; SYSTEMIC
     Route: 065
  2. PREDNISOLONE [Suspect]
     Active Substance: PREDNISOLONE
     Indication: Malignant melanoma
     Dosage: 60 MILLIGRAM; SYSTEMIC
     Route: 065
  3. INTERFERON [Concomitant]
     Active Substance: INTERFERON
     Indication: Retinopathy
     Dosage: UNK
     Route: 042
  4. INTERFERON [Concomitant]
     Active Substance: INTERFERON
     Indication: Malignant melanoma
     Dosage: UNK
     Route: 058

REACTIONS (1)
  - Therapy partial responder [Unknown]
